FAERS Safety Report 11036894 (Version 5)
Quarter: 2015Q3

REPORT INFORMATION
  Report Type: Report from Study
  Country: US (occurrence: US)
  Receive Date: 20150416
  Receipt Date: 20150917
  Transmission Date: 20151125
  Serious: Yes (Hospitalization)
  Sender: FDA-Public Use
  Company Number: US-BIOGENIDEC-2015BI046054

PATIENT
  Age: 66 Year
  Sex: Female

DRUGS (1)
  1. TYSABRI [Suspect]
     Active Substance: NATALIZUMAB
     Indication: CROHN^S DISEASE
     Route: 042
     Dates: start: 20140620, end: 20150213

REACTIONS (4)
  - Crohn^s disease [Recovered/Resolved]
  - Procedural complication [Recovered/Resolved]
  - Malnutrition [Unknown]
  - Ileostomy closure [Recovered/Resolved]

NARRATIVE: CASE EVENT DATE: 20150722
